FAERS Safety Report 5207356-0 (Version None)
Quarter: 2007Q1

REPORT INFORMATION
  Report Type: 
  Country: None (occurrence: None)
  Receive Date: 20070112
  Receipt Date: 20070102
  Transmission Date: 20070707
  Serious: Yes (Hospitalization)
  Sender: FDA-Public Use
  Company Number: FR-ROCHE-476795

PATIENT
  Age: 62 Year
  Sex: Female
  Weight: 31.8 kg

DRUGS (2)
  1. GANCICLOVIR SODIUM [Suspect]
     Indication: GLIOMA
     Route: 042
     Dates: start: 20061118, end: 20061202
  2. CEREPRO [Suspect]
     Indication: GLIOMA
     Route: 042
     Dates: start: 20061113, end: 20061113

REACTIONS (3)
  - APHASIA [None]
  - NEUROLOGICAL SYMPTOM [None]
  - URINARY TRACT INFECTION [None]
